FAERS Safety Report 10205803 (Version 1)
Quarter: 2014Q2

REPORT INFORMATION
  Report Type: Spontaneous
  Country: US (occurrence: US)
  Receive Date: 20140530
  Receipt Date: 20140530
  Transmission Date: 20141212
  Serious: Yes (Hospitalization)
  Sender: FDA-Public Use
  Company Number: US-BIOGENIDEC-2014BI049954

PATIENT
  Age: 50 Year
  Sex: Female

DRUGS (1)
  1. AVONEX [Suspect]
     Indication: MULTIPLE SCLEROSIS
     Route: 030
     Dates: end: 20140324

REACTIONS (5)
  - Hypoaesthesia [Unknown]
  - Dyspnoea [Recovered/Resolved]
  - Syncope [Unknown]
  - Upper respiratory tract infection [Recovered/Resolved]
  - Nasopharyngitis [None]
